FAERS Safety Report 8489060-9 (Version None)
Quarter: 2012Q3

REPORT INFORMATION
  Report Type: 
  Country: None (occurrence: None)
  Receive Date: 20120705
  Receipt Date: 20120621
  Transmission Date: 20120928
  Serious: Yes (Other)
  Sender: FDA-Public Use
  Company Number: AU-ROCHE-1051151

PATIENT
  Sex: Female

DRUGS (15)
  1. ACTOS [Concomitant]
  2. OXYCONTIN [Concomitant]
  3. VALIUM [Concomitant]
  4. CIRCADIN [Concomitant]
  5. ACTEMRA [Suspect]
     Route: 042
     Dates: start: 20120310
  6. BUPRENORPHINE [Concomitant]
  7. METFORMIN HCL [Concomitant]
  8. OXYCODONE HCL [Concomitant]
  9. CELEBREX [Concomitant]
  10. ACTEMRA [Suspect]
     Indication: RHEUMATOID ARTHRITIS
     Route: 042
     Dates: start: 20110129
  11. SEROQUEL [Concomitant]
  12. CLONAZEPAM [Concomitant]
  13. ACTEMRA [Suspect]
     Route: 042
     Dates: start: 20120526
  14. EFFEXOR XR [Concomitant]
  15. EFFEXOR XR [Concomitant]

REACTIONS (13)
  - WHEEZING [None]
  - EAR DISORDER [None]
  - HYPERHIDROSIS [None]
  - JOINT EFFUSION [None]
  - JOINT SWELLING [None]
  - SINUS CONGESTION [None]
  - ARTHRALGIA [None]
  - FATIGUE [None]
  - PAIN IN EXTREMITY [None]
  - DYSGEUSIA [None]
  - DYSPEPSIA [None]
  - TEARFULNESS [None]
  - OEDEMA PERIPHERAL [None]
